FAERS Safety Report 8928963 (Version 2)
Quarter: 2012Q4

REPORT INFORMATION
  Report Type: 
  Country: NO (occurrence: NO)
  Receive Date: 20121128
  Receipt Date: 20121205
  Transmission Date: 20130627
  Serious: Yes (Other)
  Sender: FDA-Public Use
  Company Number: NO-ACCORD-015288

PATIENT

DRUGS (5)
  1. PREDNISOLONE [Suspect]
     Indication: PROPHYLAXIS AGAINST LUNG TRANSPLANT REJECTION
  2. TACROLIMUS [Suspect]
     Indication: IMMUNOSUPPRESSION
  3. DOXORUBICIN [Suspect]
     Indication: ALLOGENIC STEM CELL TRANSPLANTATION
  4. METHOTREXATE [Suspect]
     Indication: ALLOGENIC STEM CELL TRANSPLANTATION
  5. MYCOPHENOLATE MOFETIL [Suspect]
     Indication: PROPHYLAXIS AGAINST TRANSPLANT REJECTION

REACTIONS (3)
  - Obliterative bronchiolitis [Unknown]
  - Chronic graft versus host disease [Unknown]
  - Off label use [Unknown]
